FAERS Safety Report 15642061 (Version 15)
Quarter: 2022Q2

REPORT INFORMATION
  Report Type: Other
  Country: CA (occurrence: CA)
  Receive Date: 20181121
  Receipt Date: 20220616
  Transmission Date: 20220721
  Serious: Yes (Life-Threatening, Other)
  Sender: FDA-Public Use
  Company Number: CA-002147023-PHHY2017CA063020

PATIENT
  Age: 39 Year
  Sex: Female
  Weight: 60 kg

DRUGS (13)
  1. XOLAIR [Suspect]
     Active Substance: OMALIZUMAB
     Indication: Chronic spontaneous urticaria
     Route: 058
     Dates: start: 20170228
  2. XOLAIR [Suspect]
     Active Substance: OMALIZUMAB
     Route: 058
     Dates: start: 20170901
  3. XOLAIR [Suspect]
     Active Substance: OMALIZUMAB
     Route: 058
     Dates: start: 20170929
  4. XOLAIR [Suspect]
     Active Substance: OMALIZUMAB
     Route: 058
     Dates: start: 20171222
  5. XOLAIR [Suspect]
     Active Substance: OMALIZUMAB
     Dosage: SOLUTION IN SYRINGE
     Route: 058
     Dates: start: 20181019
  6. XOLAIR [Suspect]
     Active Substance: OMALIZUMAB
     Dosage: SOLUTION IN SYRINGE
     Route: 058
     Dates: start: 20200115
  7. XOLAIR [Suspect]
     Active Substance: OMALIZUMAB
     Dosage: SOLUTION IN SYRINGE
     Route: 058
     Dates: start: 20210416
  8. XOLAIR [Suspect]
     Active Substance: OMALIZUMAB
     Route: 058
     Dates: start: 20170228
  9. SINGULAIR [Concomitant]
     Active Substance: MONTELUKAST SODIUM
     Indication: Product used for unknown indication
     Route: 065
     Dates: start: 201608
  10. CETIRIZINE HYDROCHLORIDE [Concomitant]
     Active Substance: CETIRIZINE HYDROCHLORIDE
     Indication: Product used for unknown indication
     Route: 065
     Dates: start: 201611
  11. DOXEPIN [Concomitant]
     Active Substance: DOXEPIN
     Indication: Product used for unknown indication
     Route: 065
     Dates: start: 201612
  12. DICYCLOMINE HYDROCHLORIDE [Concomitant]
     Active Substance: DICYCLOMINE HYDROCHLORIDE
     Indication: Product used for unknown indication
     Route: 065
  13. CIMETIDIN [Concomitant]
     Indication: Product used for unknown indication
     Route: 065

REACTIONS (15)
  - Skin reaction [Unknown]
  - Anaphylactic reaction [Unknown]
  - Hypersensitivity [Unknown]
  - Mast cell activation syndrome [Unknown]
  - Adnexa uteri pain [Unknown]
  - Ovarian mass [Unknown]
  - Lip swelling [Recovering/Resolving]
  - Angioedema [Recovering/Resolving]
  - Weight decreased [Unknown]
  - Pruritus [Unknown]
  - Condition aggravated [Unknown]
  - Urticaria [Not Recovered/Not Resolved]
  - Product use in unapproved indication [Unknown]
  - Product dose omission issue [Unknown]
  - Inappropriate schedule of product administration [Unknown]

NARRATIVE: CASE EVENT DATE: 20170301
